FAERS Safety Report 19124565 (Version 4)
Quarter: 2021Q2

REPORT INFORMATION
  Report Type: Spontaneous
  Country: SA (occurrence: SA)
  Receive Date: 20210413
  Receipt Date: 20210511
  Transmission Date: 20210717
  Serious: Yes (Other)
  Sender: FDA-Public Use
  Company Number: SA-AMGEN-SAUSP2021055119

PATIENT
  Age: 42 Year
  Sex: Female

DRUGS (1)
  1. ENBREL [Suspect]
     Active Substance: ETANERCEPT
     Indication: RHEUMATOID ARTHRITIS
     Dosage: 50 MG, 1X/DAY (50 MG AMPL), FOR FEW MONTHS (LESS THAN 10 MONTHS)
     Route: 065

REACTIONS (2)
  - Treatment noncompliance [Unknown]
  - Breast cancer female [Recovered/Resolved]
